FAERS Safety Report 6535005-8 (Version None)
Quarter: 2010Q1

REPORT INFORMATION
  Report Type: 
  Country: None (occurrence: None)
  Receive Date: 20100112
  Receipt Date: 20100107
  Transmission Date: 20100710
  Serious: Yes (Life-Threatening, Hospitalization, Other)
  Sender: FDA-Public Use
  Company Number: DE-GILEAD-2010-0026363

PATIENT
  Sex: Male

DRUGS (7)
  1. VIREAD [Suspect]
     Indication: HEPATITIS B
     Route: 048
     Dates: start: 20090701, end: 20100107
  2. PROGRAF [Concomitant]
     Indication: LIVER TRANSPLANT
     Route: 048
     Dates: start: 20090704
  3. RAPAMUNE [Concomitant]
     Indication: LIVER TRANSPLANT
     Route: 048
     Dates: start: 20090801
  4. URSO FALK [Concomitant]
     Indication: LIVER TRANSPLANT
     Route: 048
     Dates: start: 20090901
  5. PANTOPRAZOLE [Concomitant]
     Indication: PROPHYLAXIS
     Route: 048
  6. RAMIPRIL [Concomitant]
     Indication: PROTEINURIA
     Route: 048
     Dates: start: 20091217
  7. VANCOMYCIN [Concomitant]
     Indication: CLOSTRIDIUM DIFFICILE COLITIS
     Route: 048
     Dates: start: 20091114, end: 20091228

REACTIONS (3)
  - FANCONI SYNDROME ACQUIRED [None]
  - PANCYTOPENIA [None]
  - RENAL TUBULAR ACIDOSIS [None]
